FAERS Safety Report 5740240-2 (Version None)
Quarter: 2008Q2

REPORT INFORMATION
  Report Type: 
  Country: None (occurrence: None)
  Receive Date: 20080516
  Receipt Date: 20080507
  Transmission Date: 20081010
  Serious: Yes (Death, Life-Threatening, Hospitalization, Other)
  Sender: FDA-Public Use
  Company Number: JP-BRISTOL-MYERS SQUIBB COMPANY-13982384

PATIENT
  Age: 64 Year
  Sex: Male
  Weight: 48 kg

DRUGS (21)
  1. ABILIFY [Suspect]
     Indication: SCHIZOPHRENIA
     Dosage: 12MG,15MAY-28MAY07;18MG,29MAY-09JUL07;30MG,10JUL07,NOT CONT.;18MG,17JUL-19JUL07;6MG,20JUL-23JUL07.
     Route: 048
     Dates: start: 20070710, end: 20070716
  2. ZYPREXA [Suspect]
     Indication: SCHIZOPHRENIA
     Dosage: 20MG(15MAR-04JUN07);15MG(05JUN-JUN07);10MG(12JUN-18JUN07);5MG(19JUN-23JUL07);10MG(28JUL-31OCT07).
     Route: 048
     Dates: start: 20070619, end: 20070723
  3. VEGETAMIN A [Suspect]
     Route: 048
     Dates: start: 20070710, end: 20070723
  4. NITRAZEPAM [Concomitant]
     Dosage: 20MG (15-MAR-07 TO 04-JUN-07);15MG (05-JUN-07 TO 23-JUL-2007).
     Route: 048
     Dates: start: 20070605, end: 20070723
  5. MAGNESIUM OXIDE [Concomitant]
     Dosage: DURATION- 18 WEEKS AND 5 DAYS
     Route: 048
     Dates: start: 20070315, end: 20070723
  6. YODEL-S [Concomitant]
     Indication: CONSTIPATION
     Dosage: 160MG (15-MAR-2007 TO 02-APR-2007); 400MG (03-APR-2007 TO 14-JUL-2007).
     Route: 048
     Dates: start: 20070315, end: 20070714
  7. VANCOMIN [Concomitant]
     Indication: NEUROPATHY PERIPHERAL
     Route: 048
     Dates: start: 20070324, end: 20070803
  8. PRORENAL [Concomitant]
     Indication: SPINAL COLUMN STENOSIS
     Route: 048
     Dates: start: 20070324, end: 20070803
  9. ARICEPT [Concomitant]
     Indication: DEMENTIA ALZHEIMER'S TYPE
     Dosage: 15MG (14-APR-2007 TO 16-APR-2007)(29-MAY-2007 TO 04-JUN-2007); 30MG (05-JUN-2007 TO 23-AUG-2007).
     Route: 048
     Dates: start: 20070327, end: 20070727
  10. DORAL [Concomitant]
     Dosage: 15MG (14-APR-2007 TO 16-APR-2007)(29-MAY-2007 TO 04-JUN-2007).
     Route: 048
     Dates: start: 20070605, end: 20070823
  11. TRIAZOLAM [Concomitant]
     Route: 048
     Dates: start: 20070626, end: 20070723
  12. MAGMITT [Concomitant]
     Dates: start: 20070720, end: 20070731
  13. SENNOSIDE [Concomitant]
     Dates: start: 20070716, end: 20070730
  14. BISOLVON [Concomitant]
     Dates: start: 20070722, end: 20071026
  15. IMMUNE GLOBULIN INTRAVENOUS (HUMAN) [Concomitant]
     Dates: start: 20070723, end: 20070724
  16. TRIHEXYPHENIDYL HCL [Concomitant]
     Dates: start: 20070315
  17. FLUNITRAZEPAM [Concomitant]
     Dates: start: 20070728, end: 20071028
  18. BIOFERMIN [Concomitant]
     Dates: start: 20070731, end: 20070810
  19. LOPEMIN [Concomitant]
     Dates: start: 20070731, end: 20070802
  20. THIAMINE HCL [Concomitant]
     Dates: start: 20070804, end: 20070907
  21. AMBROXOL HCL [Concomitant]
     Dates: start: 20070805, end: 20071026

REACTIONS (2)
  - PNEUMONIA [None]
  - PNEUMONIA ASPIRATION [None]
